FAERS Safety Report 11487021 (Version 1)
Quarter: 2015Q3

REPORT INFORMATION
  Report Type: Spontaneous
  Country: US (occurrence: US)
  Receive Date: 20150910
  Receipt Date: 20150910
  Transmission Date: 20151125
  Serious: No
  Sender: FDA-Public Use
  Company Number: US-PFIZER INC-2015297085

PATIENT
  Sex: Female

DRUGS (2)
  1. LEVOTHYROXINE SODIUM. [Suspect]
     Active Substance: LEVOTHYROXINE SODIUM
     Indication: THYROID DISORDER
     Dosage: UNK
  2. SERTRALINE HCL [Suspect]
     Active Substance: SERTRALINE HYDROCHLORIDE
     Dosage: UNK

REACTIONS (9)
  - Urticaria [Unknown]
  - Rash macular [Unknown]
  - Fatigue [Unknown]
  - Rash pruritic [Unknown]
  - Lethargy [Unknown]
  - Somnolence [Unknown]
  - Erythema [Unknown]
  - Skin discolouration [Unknown]
  - Photosensitivity reaction [Unknown]
